FAERS Safety Report 10137087 (Version 2)
Quarter: 2014Q2

REPORT INFORMATION
  Report Type: Spontaneous
  Country: GB (occurrence: None)
  Receive Date: 20140425
  Receipt Date: 20140516
  Transmission Date: 20141212
  Serious: Yes (Hospitalization)
  Sender: FDA-Public Use
  Company Number: 2307109

PATIENT
  Age: 15 Year
  Sex: Female
  Weight: 66 kg

DRUGS (3)
  1. GENTAMICIN SULFATE [Suspect]
     Indication: ACUTE PROMYELOCYTIC LEUKAEMIA
     Dosage: UNKNOWN , UNKNOWN, UNKNOWN  UNKNOWN THERAPY DATES
  2. TRETINOIN [Suspect]
     Indication: ACUTE PROMYELOCYTIC LEUKAEMIA
     Dosage: UNKNOWN , UNKNOWN , ORAL
     Route: 048
  3. VORICONAZOLE [Suspect]
     Indication: ACUTE PROMYELOCYTIC LEUKAEMIA
     Dosage: UNKNOWN , UNKNOWN, UNKNOWN  UNKNOWN THERAPY DATES

REACTIONS (1)
  - Renal failure [None]
